FAERS Safety Report 7870887-9 (Version None)
Quarter: 2011Q4

REPORT INFORMATION
  Report Type: 
  Country: None (occurrence: None)
  Receive Date: 20111029
  Receipt Date: 20110218
  Transmission Date: 20120403
  Serious: No
  Sender: FDA-Public Use
  Company Number: US-AMGEN-USASP2011009699

PATIENT
  Age: 52 Year
  Sex: Female

DRUGS (2)
  1. PREDNISONE [Concomitant]
  2. ENBREL [Suspect]
     Indication: RHEUMATOID ARTHRITIS
     Dosage: 50 MG, QWK
     Route: 058
     Dates: start: 20100526

REACTIONS (5)
  - RHEUMATOID ARTHRITIS [None]
  - FATIGUE [None]
  - INJECTION SITE HAEMATOMA [None]
  - DECREASED APPETITE [None]
  - WEIGHT DECREASED [None]
